FAERS Safety Report 9812771 (Version 2)
Quarter: 2015Q2

REPORT INFORMATION
  Report Type: Spontaneous
  Country: US (occurrence: US)
  Receive Date: 20140113
  Receipt Date: 20150522
  Transmission Date: 20150821
  Serious: Yes (Hospitalization, Other)
  Sender: FDA-Public Use
  Company Number: US-009507513-1401USA001052

PATIENT
  Sex: Female

DRUGS (3)
  1. ACTONEL [Suspect]
     Active Substance: RISEDRONATE SODIUM
     Indication: OSTEOPENIA
     Dosage: 35 MG, WEEKLY
     Route: 048
     Dates: start: 20060822, end: 20070605
  2. FOSAMAX [Suspect]
     Active Substance: ALENDRONATE SODIUM
     Indication: OSTEOPENIA
     Dosage: 10 MG, QW
     Route: 048
     Dates: start: 20000106, end: 20050914
  3. ALENDRONATE SODIUM. [Suspect]
     Active Substance: ALENDRONATE SODIUM
     Indication: OSTEOPENIA
     Dosage: 70 MG, QW
     Route: 048
     Dates: start: 20090330, end: 20120126

REACTIONS (8)
  - Intramedullary rod insertion [Unknown]
  - Blood cholesterol increased [Unknown]
  - Vitamin D deficiency [Unknown]
  - Vitamin D decreased [Unknown]
  - Femur fracture [Unknown]
  - Blood calcium decreased [Unknown]
  - Wrist fracture [Unknown]
  - Hypertension [Unknown]

NARRATIVE: CASE EVENT DATE: 2003
